FAERS Safety Report 13142957 (Version 2)
Quarter: 2017Q1

REPORT INFORMATION
  Report Type: Spontaneous
  Country: US (occurrence: US)
  Receive Date: 20170123
  Receipt Date: 20170227
  Transmission Date: 20170428
  Serious: Yes (Hospitalization)
  Sender: FDA-Public Use
  Company Number: US-BEH-2017077419

PATIENT
  Age: 42 Year
  Sex: Female
  Weight: 68.93 kg

DRUGS (6)
  1. HIZENTRA [Suspect]
     Active Substance: HUMAN IMMUNOGLOBULIN G
     Indication: IMMUNODEFICIENCY COMMON VARIABLE
     Dosage: UNK UNK, QOW
     Route: 058
     Dates: start: 201606
  2. FLONASE [Concomitant]
     Active Substance: FLUTICASONE PROPIONATE
     Route: 065
  3. HIZENTRA [Suspect]
     Active Substance: HUMAN IMMUNOGLOBULIN G
     Dosage: 20 G, UNK
     Route: 058
     Dates: start: 201612, end: 20170113
  4. AFRIN [Concomitant]
     Active Substance: OXYMETAZOLINE
     Route: 065
  5. MUPIROCIN. [Concomitant]
     Active Substance: MUPIROCIN
     Dosage: UNK, PRN
     Route: 045
  6. MUCINEX [Concomitant]
     Active Substance: GUAIFENESIN
     Route: 065

REACTIONS (3)
  - Haemolytic anaemia [Recovered/Resolved]
  - Dyspnoea exertional [Recovered/Resolved]
  - Asthenia [Recovered/Resolved]

NARRATIVE: CASE EVENT DATE: 201701
